FAERS Safety Report 21005262 (Version 1)
Quarter: 2022Q2

REPORT INFORMATION
  Report Type: Spontaneous
  Country: GB (occurrence: GB)
  Receive Date: 20220624
  Receipt Date: 20220624
  Transmission Date: 20220721
  Serious: Yes (Other)
  Sender: FDA-Public Use
  Company Number: GB-ORG100012376-2022000083

PATIENT
  Age: 17 Year
  Sex: Female

DRUGS (3)
  1. HYDROCORTISONE [Suspect]
     Active Substance: HYDROCORTISONE
     Indication: Adrenogenital syndrome
     Dosage: 4 MG MIDDAY, 3MG AT 6 PM AND 1 MG MIDNIGHT, UNIT DOSE: 1DF
     Route: 065
  2. HYDROCORTISONE [Suspect]
     Active Substance: HYDROCORTISONE
     Dosage: 10 MILLIGRAM DAILY; 10 MG AT 6 AM
     Route: 065
  3. HYDROCORTISONE [Suspect]
     Active Substance: HYDROCORTISONE
     Indication: Adrenogenital syndrome
     Dosage: 20 MILLIGRAM DAILY; (TOTAL DAILY DOSE 20 MG: 5MG- 8AM +15MG- 8PM), UNIT DOSE: 5MG
     Route: 065

REACTIONS (1)
  - Adrenal insufficiency [Unknown]
